FAERS Safety Report 20351460 (Version 1)
Quarter: 2022Q1

REPORT INFORMATION
  Report Type: Report from Study
  Country: IT (occurrence: IT)
  Receive Date: 20220119
  Receipt Date: 20220119
  Transmission Date: 20220423
  Serious: Yes (Other)
  Sender: FDA-Public Use
  Company Number: None

PATIENT
  Age: 52 Year
  Sex: Female

DRUGS (1)
  1. CARBOPLATIN [Suspect]
     Active Substance: CARBOPLATIN
     Indication: Breast cancer
     Dosage: 200MG
     Route: 065
     Dates: start: 20211228, end: 20211228

REACTIONS (2)
  - Oedema peripheral [Recovered/Resolved]
  - Paraesthesia [Recovered/Resolved]

NARRATIVE: CASE EVENT DATE: 20211228
